FAERS Safety Report 6212899-7 (Version None)
Quarter: 2009Q2

REPORT INFORMATION
  Report Type: 
  Country: None (occurrence: None)
  Receive Date: 20090601
  Receipt Date: 20090522
  Transmission Date: 20091009
  Serious: Yes (Hospitalization)
  Sender: FDA-Public Use
  Company Number: 2009US000530

PATIENT
  Age: 75 Year
  Sex: Male
  Weight: 89.8 kg

DRUGS (17)
  1. AMEVIVE [Suspect]
     Indication: PSORIASIS
     Dosage: 15 MG, WEEKLY, INTRAMUSCULAR
     Route: 030
     Dates: start: 20050301, end: 20050517
  2. AMEVIVE [Suspect]
     Indication: PSORIASIS
     Dosage: 15 MG, WEEKLY, INTRAMUSCULAR
     Route: 030
     Dates: start: 20050816, end: 20051101
  3. ALBUTEROL (SALBUTAMOL SULFATE) [Concomitant]
  4. PULMICORT-100 [Concomitant]
  5. MUCINEX [Concomitant]
  6. SINGULAIR [Concomitant]
  7. CLARITIN [Concomitant]
  8. SIMVASTATIN [Concomitant]
  9. SYNTHROID [Concomitant]
  10. ASPIRIN [Concomitant]
  11. COREG [Concomitant]
  12. LASIX [Concomitant]
  13. CAPTOPRIL [Concomitant]
  14. ENBREL [Concomitant]
  15. TACLONEX (BETAMETHASONE DIPROPIONATE, CALCIPOTRIL) [Concomitant]
  16. CLOBETASOL (CLOBETASOL) [Concomitant]
  17. PREDNISONE TAB [Concomitant]

REACTIONS (6)
  - ASTHMA [None]
  - CHRONIC OBSTRUCTIVE PULMONARY DISEASE [None]
  - CONDITION AGGRAVATED [None]
  - EMPHYSEMA [None]
  - HYPERGLYCAEMIA [None]
  - LOBAR PNEUMONIA [None]
